FAERS Safety Report 6891509-X (Version None)
Quarter: 2010Q3

REPORT INFORMATION
  Report Type: 
  Country: None (occurrence: None)
  Receive Date: 20100731
  Receipt Date: 20071217
  Transmission Date: 20110219
  Serious: No
  Sender: FDA-Public Use
  Company Number: US-PFIZER INC-2007014262

PATIENT
  Sex: Male
  Weight: 73.48 kg

DRUGS (1)
  1. NORVASC [Suspect]
     Indication: HYPERTENSION
     Dates: start: 20040101

REACTIONS (1)
  - BLOOD PRESSURE INCREASED [None]
